FAERS Safety Report 23794661 (Version 1)
Quarter: 2024Q2

REPORT INFORMATION
  Report Type: Spontaneous
  Country: FR (occurrence: FR)
  Receive Date: 20240429
  Receipt Date: 20240429
  Transmission Date: 20240716
  Serious: Yes (Hospitalization)
  Sender: FDA-Public Use
  Company Number: FR-MYLANLABS-2024M1037735

PATIENT
  Age: 60 Year
  Sex: Female

DRUGS (1)
  1. EFFEXOR [Suspect]
     Active Substance: VENLAFAXINE HYDROCHLORIDE
     Indication: Bipolar disorder
     Dosage: 75 MILLIGRAM, QD
     Route: 048
     Dates: start: 2019

REACTIONS (8)
  - Obsessive-compulsive disorder [Recovered/Resolved with Sequelae]
  - Enteral nutrition [Recovered/Resolved with Sequelae]
  - Weight decreased [Recovered/Resolved with Sequelae]
  - Dyskinesia [Not Recovered/Not Resolved]
  - Movement disorder [Not Recovered/Not Resolved]
  - Dysphagia [Not Recovered/Not Resolved]
  - Compulsive lip biting [Not Recovered/Not Resolved]
  - Depressed mood [Not Recovered/Not Resolved]

NARRATIVE: CASE EVENT DATE: 20190101
